FAERS Safety Report 21112314 (Version 1)
Quarter: 2022Q3

REPORT INFORMATION
  Report Type: Spontaneous
  Country: US (occurrence: None)
  Receive Date: 20220721
  Receipt Date: 20220721
  Transmission Date: 20221027
  Serious: Yes (Death)
  Sender: FDA-Public Use
  Company Number: None

PATIENT
  Age: 78 Year
  Sex: Male
  Weight: 93.89 kg

DRUGS (15)
  1. BEBTELOVIMAB [Suspect]
     Active Substance: BEBTELOVIMAB
     Dates: start: 20220715, end: 20220715
  2. AMIODARONE [Concomitant]
     Active Substance: AMIODARONE
  3. METOPROLOL SUCCINATE [Concomitant]
     Active Substance: METOPROLOL SUCCINATE
  4. SPIRONOLACTONE [Concomitant]
     Active Substance: SPIRONOLACTONE
  5. BUMETANIDE [Concomitant]
     Active Substance: BUMETANIDE
  6. TAMSULOSIN [Concomitant]
     Active Substance: TAMSULOSIN
  7. TRELEGY ELLIPTA [Concomitant]
     Active Substance: FLUTICASONE FUROATE\UMECLIDINIUM BROMIDE\VILANTEROL TRIFENATATE
  8. ZYRTEC [Concomitant]
     Active Substance: CETIRIZINE HYDROCHLORIDE
  9. MAGNESIUM OXIDE [Concomitant]
     Active Substance: MAGNESIUM OXIDE
  10. ALLOPURINOL [Concomitant]
  11. PANTOPRAZOLE [Concomitant]
  12. POTASSIUM CHLORIDE [Concomitant]
  13. ELIQUIS [Concomitant]
     Active Substance: APIXABAN
  14. IRON [Concomitant]
     Active Substance: IRON
  15. VITAMIN C [Concomitant]
     Active Substance: ASCORBIC ACID

REACTIONS (5)
  - Hypoxia [None]
  - Oxygen saturation decreased [None]
  - Respiratory arrest [None]
  - Pulse absent [None]
  - Infusion related reaction [None]

NARRATIVE: CASE EVENT DATE: 20220715
